FAERS Safety Report 11228636 (Version 1)
Quarter: 2015Q2

REPORT INFORMATION
  Report Type: Spontaneous
  Country: JP (occurrence: JP)
  Receive Date: 20150630
  Receipt Date: 20150630
  Transmission Date: 20150821
  Serious: Yes (Hospitalization, Disabling, Other)
  Sender: FDA-Public Use
  Company Number: JP-ASTELLAS-2015JP011279

PATIENT
  Age: 64 Year
  Sex: Female
  Weight: 38 kg

DRUGS (14)
  1. BIO-THREE [Concomitant]
     Active Substance: HERBALS
     Indication: GASTROINTESTINAL DISORDER
     Route: 048
     Dates: end: 20150519
  2. JUSO [Concomitant]
     Indication: CHRONIC KIDNEY DISEASE
     Route: 048
     Dates: end: 20150519
  3. PREDONINE [Concomitant]
     Active Substance: PREDNISOLONE\PREDNISOLONE ACETATE\PREDNISOLONE SODIUM SUCCINATE
     Indication: RHEUMATOID ARTHRITIS
     Route: 048
     Dates: end: 20150519
  4. PREDONINE [Concomitant]
     Active Substance: PREDNISOLONE\PREDNISOLONE ACETATE\PREDNISOLONE SODIUM SUCCINATE
     Dosage: UNK UNK, UNKNOWN FREQ.
     Route: 048
     Dates: start: 20150525
  5. KALIMATE [Concomitant]
     Active Substance: CALCIUM POLYSTYRENE SULFONATE
     Indication: CHRONIC KIDNEY DISEASE
     Dosage: 5 G, 4 TIMES A WEEK
     Route: 048
     Dates: end: 20150429
  6. NAUZELIN [Concomitant]
     Active Substance: DOMPERIDONE
     Indication: NAUSEA
     Route: 048
     Dates: end: 20150519
  7. REGPARA [Concomitant]
     Active Substance: CINACALCET HYDROCHLORIDE
     Indication: HYPERPARATHYROIDISM SECONDARY
     Route: 048
     Dates: end: 20150428
  8. LENDORMIN [Concomitant]
     Active Substance: BROTIZOLAM
     Indication: INSOMNIA
     Dosage: 0.25 MG, ONCE DAILY
     Route: 048
     Dates: end: 20150519
  9. RISUMIC [Concomitant]
     Active Substance: AMEZINIUM METILSULFATE
     Indication: CHRONIC KIDNEY DISEASE
     Route: 048
     Dates: end: 20150429
  10. TAKEPRON [Concomitant]
     Active Substance: LANSOPRAZOLE
     Indication: PROPHYLAXIS
     Route: 048
     Dates: end: 20150519
  11. MUCOSTA [Concomitant]
     Active Substance: REBAMIPIDE
     Indication: PROPHYLAXIS
     Route: 048
     Dates: end: 20150519
  12. PRALIA [Concomitant]
     Active Substance: DENOSUMAB
     Indication: OSTEOPOROSIS
     Dosage: 60 MG, EVERY SIX MONTHS
     Route: 058
     Dates: start: 20131212
  13. PROGRAF [Suspect]
     Active Substance: TACROLIMUS\TACROLIMUS ANHYDROUS
     Indication: RHEUMATOID ARTHRITIS
     Route: 048
     Dates: start: 20110331, end: 20150519
  14. PHOSBLOCK [Concomitant]
     Active Substance: FERRIC HYDROXIDE
     Indication: CHRONIC KIDNEY DISEASE
     Route: 048
     Dates: end: 20150428

REACTIONS (3)
  - Femur fracture [Recovering/Resolving]
  - Altered state of consciousness [Not Recovered/Not Resolved]
  - Platelet count decreased [Recovered/Resolved]

NARRATIVE: CASE EVENT DATE: 201504
